FAERS Safety Report 7249056-1 (Version None)
Quarter: 2011Q1

REPORT INFORMATION
  Report Type: 
  Country: None (occurrence: None)
  Receive Date: 20110128
  Receipt Date: 20100721
  Transmission Date: 20110831
  Serious: Yes (Hospitalization, Other)
  Sender: FDA-Public Use
  Company Number: US-BAYER-201016333NA

PATIENT
  Sex: Female
  Weight: 81.633 kg

DRUGS (6)
  1. OCELLA [Suspect]
     Indication: PRODUCT USED FOR UNKNOWN INDICATION
     Dates: start: 20071201
  2. DEPO-PROVERA [Concomitant]
     Dosage: UNK
     Dates: start: 20090401
  3. YAZ [Suspect]
     Indication: CONTRACEPTION
     Dosage: UNK UNK, QD
     Route: 048
     Dates: start: 20071201, end: 20081201
  4. YAZ [Suspect]
     Dosage: UNK
     Dates: start: 20000101
  5. DEPO-PROVERA [Concomitant]
     Dosage: UNK
     Dates: start: 20060101
  6. YASMIN [Suspect]
     Indication: PRODUCT USED FOR UNKNOWN INDICATION
     Route: 048
     Dates: start: 20071201

REACTIONS (7)
  - MENTAL DISORDER [None]
  - CHOLECYSTECTOMY [None]
  - PAIN [None]
  - CHOLECYSTITIS [None]
  - ABDOMINAL PAIN UPPER [None]
  - CHOLELITHIASIS [None]
  - CHOLECYSTITIS CHRONIC [None]
